FAERS Safety Report 9505783 (Version 1)
Quarter: 2013Q1

REPORT INFORMATION
  Report Type: Spontaneous
  Country: DE (occurrence: None)
  Receive Date: 20130225
  Receipt Date: 20130225
  Transmission Date: 20140127
  Serious: Yes (Other)
  Sender: FDA-Public Use
  Company Number: 2012-082

PATIENT
  Age: 53 Year
  Sex: Male

DRUGS (1)
  1. PRIALT [Suspect]
     Indication: BACK PAIN
     Dosage: ONCE AN HR
     Route: 037
     Dates: start: 20120201, end: 20120203

REACTIONS (6)
  - Accidental overdose [None]
  - Pyrexia [None]
  - Chills [None]
  - Pain [None]
  - Paraesthesia [None]
  - Dizziness [None]
